FAERS Safety Report 9512171 (Version 2)
Quarter: 2013Q3

REPORT INFORMATION
  Report Type: Spontaneous
  Country: SE (occurrence: None)
  Receive Date: 20130906
  Receipt Date: 20130919
  Transmission Date: 20140515
  Serious: Yes (Hospitalization)
  Sender: FDA-Public Use
  Company Number: 2013DEPSE00022

PATIENT
  Sex: 0

DRUGS (2)
  1. DEPOCYT [Suspect]
     Indication: PRODUCT USED FOR UNKNOWN INDICATION
  2. VINCRISTINE [Suspect]
     Indication: PRODUCT USED FOR UNKNOWN INDICATION
     Dosage: 2 MG, UNK, INTRAVENOUS
     Route: 042
     Dates: start: 20110511, end: 20110511

REACTIONS (2)
  - Ileus [None]
  - Rectal perforation [None]
